FAERS Safety Report 4979415-9 (Version None)
Quarter: 2006Q2

REPORT INFORMATION
  Report Type: 
  Country: None (occurrence: None)
  Receive Date: 20060421
  Receipt Date: 20051221
  Transmission Date: 20061013
  Serious: Yes (Hospitalization, Disabling)
  Sender: FDA-Public Use
  Company Number: US-MERCK-0512USA03451

PATIENT
  Age: 79 Year
  Sex: Male
  Weight: 77 kg

DRUGS (3)
  1. VIOXX [Suspect]
     Indication: ARTHROPATHY
     Route: 048
     Dates: start: 20000412, end: 20021029
  2. VIOXX [Suspect]
     Indication: ARTHRALGIA
     Route: 048
     Dates: start: 20000412, end: 20021029
  3. ASPIRIN [Concomitant]
     Indication: PROPHYLAXIS
     Route: 065
     Dates: end: 20021001

REACTIONS (7)
  - ARTHROPATHY [None]
  - BACK INJURY [None]
  - DEPRESSION [None]
  - GASTRIC ULCER HAEMORRHAGE [None]
  - JOINT INJURY [None]
  - LIMB INJURY [None]
  - MYOCARDIAL INFARCTION [None]
